FAERS Safety Report 5985920-9 (Version None)
Quarter: 2008Q4

REPORT INFORMATION
  Report Type: 
  Country: None (occurrence: None)
  Receive Date: 20081205
  Receipt Date: 20081205
  Transmission Date: 20090506
  Serious: Yes (Other)
  Sender: FDA-Public Use
  Company Number: None

PATIENT
  Sex: Male
  Weight: 33.1126 kg

DRUGS (8)
  1. TAXOTERE [Suspect]
     Indication: PROSTATE CANCER
     Dosage: 75MG/M2 IV 1 HR Q3WKS
     Route: 042
     Dates: start: 20081117
  2. PREDNISONE TAB [Suspect]
     Indication: PROSTATE CANCER
     Dosage: 5 MG ORALLY TWICE A DAY
     Route: 048
     Dates: start: 20081116
  3. DEXAMETHASONE [Concomitant]
  4. ZOMETA [Concomitant]
  5. LUPRON [Concomitant]
  6. FLOMAX [Concomitant]
  7. SENNA [Concomitant]
  8. COLACE [Concomitant]

REACTIONS (2)
  - NEUTROPENIA [None]
  - TOOTH INFECTION [None]
